FAERS Safety Report 7920956-X (Version None)
Quarter: 2011Q4

REPORT INFORMATION
  Report Type: 
  Country: None (occurrence: None)
  Receive Date: 20111117
  Receipt Date: 20111104
  Transmission Date: 20120403
  Serious: Yes (Other)
  Sender: FDA-Public Use
  Company Number: US-MYLANLABS-2011S1023239

PATIENT
  Age: 35 Year
  Sex: Male
  Weight: 91 kg

DRUGS (4)
  1. PROPOFOL [Suspect]
     Route: 065
  2. REMIFENTANIL [Suspect]
     Route: 065
  3. OXYBUTYNIN [Suspect]
     Dosage: 10MG TOTAL DOSE
     Route: 065
  4. DEXMEDETOMIDINE HYDROCHLORIDE [Concomitant]
     Dosage: TOTAL DOSE 36.34MG
     Route: 065

REACTIONS (1)
  - ANAESTHETIC COMPLICATION NEUROLOGICAL [None]
